FAERS Safety Report 15299357 (Version 1)
Quarter: 2018Q3

REPORT INFORMATION
  Report Type: Spontaneous
  Country: SE (occurrence: SE)
  Receive Date: 20180821
  Receipt Date: 20180821
  Transmission Date: 20181010
  Serious: Yes (Life-Threatening, Hospitalization)
  Sender: FDA-Public Use
  Company Number: SE-TEVA-2018-SE-944436

PATIENT
  Age: 78 Year
  Sex: Male

DRUGS (6)
  1. OMEPRAZOLE. [Suspect]
     Active Substance: OMEPRAZOLE
     Indication: ABDOMINAL DISCOMFORT
     Dosage: 40 MILLIGRAM DAILY;
     Route: 048
     Dates: start: 20180213, end: 20180301
  2. CITALOPRAM [Concomitant]
     Active Substance: CITALOPRAM HYDROBROMIDE
     Route: 065
     Dates: start: 201802
  3. ORENCIA [Suspect]
     Active Substance: ABATACEPT
     Indication: RHEUMATOID ARTHRITIS
     Dosage: 750 MG 1 G?NG PER M?NAD
     Dates: start: 20140709, end: 20180129
  4. PREDNISOLON [Concomitant]
     Active Substance: PREDNISOLONE
     Route: 065
  5. ESOMEPRAZOLE [Suspect]
     Active Substance: ESOMEPRAZOLE
     Indication: ABDOMINAL DISCOMFORT
     Dosage: 80 MILLIGRAM DAILY;
     Route: 048
     Dates: start: 20180302, end: 20180328
  6. KALCIPOS?D FORTE [Concomitant]
     Active Substance: CALCIUM CARBONATE\CHOLECALCIFEROL
     Route: 065

REACTIONS (1)
  - Neutropenia [Not Recovered/Not Resolved]

NARRATIVE: CASE EVENT DATE: 20180322
